FAERS Safety Report 7399161-4 (Version None)
Quarter: 2011Q2

REPORT INFORMATION
  Report Type: 
  Country: None (occurrence: None)
  Receive Date: 20110407
  Receipt Date: 20110401
  Transmission Date: 20111010
  Serious: Yes (Other)
  Sender: FDA-Public Use
  Company Number: US-BRISTOL-MYERS SQUIBB COMPANY-15614118

PATIENT
  Age: 56 Year
  Sex: Male
  Weight: 95 kg

DRUGS (17)
  1. ASCORBIC ACID [Concomitant]
     Dates: start: 19910101
  2. GLUCOSAMINE [Concomitant]
     Dates: start: 20080101
  3. FOLIC ACID [Concomitant]
     Dates: start: 20110119
  4. DEXAMETHASONE [Concomitant]
     Dates: start: 20110125
  5. ZAROXOLYN [Concomitant]
     Dates: start: 20110302
  6. MULTI-VITAMIN [Concomitant]
     Dates: start: 19910101
  7. ATIVAN [Concomitant]
  8. MIRALAX [Concomitant]
     Dates: start: 20110215
  9. ALIMTA [Suspect]
     Indication: NON-SMALL CELL LUNG CANCER
     Dosage: LAST DOSE ON 16FEB2011.DISCONTINUED ON7MAR11
     Route: 042
     Dates: start: 20110126, end: 20110216
  10. VITAMIN B-12 [Concomitant]
     Dates: start: 20110129
  11. CHONDROITIN SULFATE [Concomitant]
     Dates: start: 20080101
  12. NORCO [Concomitant]
     Dates: start: 20110107
  13. FENTANYL [Concomitant]
     Dates: start: 20110119
  14. MORPHINE SULFATE [Concomitant]
     Dosage: MORPHINE SULFATE TAB SOLUBLE
     Dates: start: 20110110
  15. POTASSIUM [Concomitant]
     Dates: start: 20110309
  16. CARBOPLATIN [Suspect]
     Indication: NON-SMALL CELL LUNG CANCER
     Dosage: LAST DOSE ON 16 FEB 2011.1 DF=6 AUC,DISCONTINUED ON7MAR11
     Route: 042
     Dates: start: 20110126, end: 20110216
  17. COMPAZINE [Concomitant]
     Dates: start: 20110208

REACTIONS (3)
  - OEDEMA PERIPHERAL [None]
  - PERFORMANCE STATUS DECREASED [None]
  - DYSPNOEA [None]
